FAERS Safety Report 7973680-1 (Version None)
Quarter: 2011Q4

REPORT INFORMATION
  Report Type: 
  Country: None (occurrence: None)
  Receive Date: 20111213
  Receipt Date: 20111205
  Transmission Date: 20120403
  Serious: Yes (Hospitalization)
  Sender: FDA-Public Use
  Company Number: US-ELI_LILLY_AND_COMPANY-US201112001922

PATIENT
  Sex: Female

DRUGS (4)
  1. LANTUS [Concomitant]
     Dosage: UNK
  2. HUMALOG [Suspect]
     Dosage: 45 U, TID
     Dates: start: 20070101
  3. METFORMIN HCL [Concomitant]
     Dosage: UNK
  4. HUMALOG [Suspect]
     Indication: DIABETES MELLITUS
     Dosage: 45 U, TID
     Dates: start: 20070101

REACTIONS (3)
  - CARDIAC OPERATION [None]
  - CARPAL TUNNEL SYNDROME [None]
  - PERIPHERAL NERVE OPERATION [None]
